FAERS Safety Report 11150765 (Version 1)
Quarter: 2015Q2

REPORT INFORMATION
  Report Type: Spontaneous
  Country: US (occurrence: None)
  Receive Date: 20150528
  Receipt Date: 20150528
  Transmission Date: 20150821
  Serious: Yes (Death)
  Sender: FDA-Public Use
  Company Number: CIO15032731

PATIENT
  Age: 53 Year
  Sex: Female

DRUGS (3)
  1. P+GUNKNONPGDPHNPGZDPH#(DIPHENHYDRAMINE HYDROCHLORIDE UNK UNK) UNKNOWN, UNKUNK [Suspect]
     Active Substance: DIPHENHYDRAMINE HYDROCHLORIDE
  2. DOXEPIN (DOXEPIN) (DOXEPIN) [Suspect]
     Active Substance: DOXEPIN
  3. CITALOPRAM [Concomitant]
     Active Substance: CITALOPRAM HYDROBROMIDE

REACTIONS (4)
  - Overdose [None]
  - Cardiac arrest [None]
  - Seizure [None]
  - Unresponsive to stimuli [None]
